FAERS Safety Report 8776965 (Version 6)
Quarter: 2014Q3

REPORT INFORMATION
  Report Type: Spontaneous
  Country: US (occurrence: US)
  Receive Date: 20120911
  Receipt Date: 20140718
  Transmission Date: 20150326
  Serious: Yes (Hospitalization)
  Sender: FDA-Public Use
  Company Number: US-GLAXOSMITHKLINE-A0992777A

PATIENT
  Sex: Male
  Weight: 114.1 kg

DRUGS (2)
  1. AVANDIA [Suspect]
     Active Substance: ROSIGLITAZONE MALEATE
     Indication: DIABETES MELLITUS
     Dosage: 8MG PER DAY
     Route: 048
     Dates: start: 200012, end: 200704
  2. AVANDAMET [Suspect]
     Active Substance: METFORMIN HYDROCHLORIDE\ROSIGLITAZONE MALEATE
     Indication: DIABETES MELLITUS
     Route: 048
     Dates: start: 20070126, end: 200705

REACTIONS (14)
  - Arteriosclerosis [Unknown]
  - Cardiac disorder [Unknown]
  - Atrial flutter [Unknown]
  - Pleural effusion [Unknown]
  - Aortic valve replacement [Unknown]
  - Cardiac failure congestive [Unknown]
  - Atrial fibrillation [Unknown]
  - Dyspnoea [Unknown]
  - Heart injury [Unknown]
  - Cardiac arrest [Unknown]
  - Aortic stenosis [Unknown]
  - Cardiogenic shock [Unknown]
  - Pericardial effusion [Unknown]
  - Fatigue [Unknown]
